FAERS Safety Report 9273953 (Version 1)
Quarter: 2013Q2

REPORT INFORMATION
  Report Type: Spontaneous
  Country: US (occurrence: US)
  Receive Date: 20130506
  Receipt Date: 20130506
  Transmission Date: 20140414
  Serious: No
  Sender: FDA-Public Use
  Company Number: US-AMGEN-USASP2013028273

PATIENT
  Age: 59 Year
  Sex: Female
  Weight: 131.52 kg

DRUGS (1)
  1. ENBREL [Suspect]
     Indication: RHEUMATOID ARTHRITIS
     Dosage: UNK UNK, QWK
     Route: 058
     Dates: start: 20130409, end: 20130422

REACTIONS (3)
  - Rash [Recovering/Resolving]
  - Pruritus generalised [Unknown]
  - Injection site rash [Unknown]
